FAERS Safety Report 14623538 (Version 1)
Quarter: 2018Q1

REPORT INFORMATION
  Report Type: Spontaneous
  Country: FR (occurrence: FR)
  Receive Date: 20180312
  Receipt Date: 20180312
  Transmission Date: 20180509
  Serious: Yes (Hospitalization)
  Sender: FDA-Public Use
  Company Number: FR-AUROBINDO-AUR-APL-2018-012570

PATIENT
  Age: 66 Year
  Sex: Male

DRUGS (13)
  1. HEPARIN [Suspect]
     Active Substance: HEPARIN SODIUM
     Indication: EMBOLISM VENOUS
     Dosage: 60000 INTERNATIONAL UNIT, PLUSIEURS POSOLOGIES DE 60000 UI/JOUR ? 25000 UI/JOUR
     Route: 058
     Dates: start: 20180129, end: 20180214
  2. CALCIPARINE [Suspect]
     Active Substance: HEPARIN CALCIUM
     Indication: EMBOLISM VENOUS
     Dosage: 20000 INTERNATIONAL UNIT
     Route: 058
     Dates: start: 20180214
  3. VANCOMYCINE SANDOZ [Suspect]
     Active Substance: VANCOMYCIN
     Indication: INTERVERTEBRAL DISCITIS
     Dosage: 3500 MILLIGRAM, ONCE A DAY
     Route: 048
     Dates: start: 20180121, end: 20180124
  4. TAVANIC [Suspect]
     Active Substance: LEVOFLOXACIN
     Indication: INTERVERTEBRAL DISCITIS
     Dosage: 1000 MILLIGRAM, ONCE A DAY, 1-0-1
     Route: 048
     Dates: start: 20180129, end: 20180205
  5. PANTOPRAZOLE [Suspect]
     Active Substance: PANTOPRAZOLE
     Indication: GASTROINTESTINAL HAEMORRHAGE
     Dosage: 8 MILLIGRAM, EVERY HOUR
     Route: 042
     Dates: start: 20180202, end: 20180205
  6. LOVENOX [Suspect]
     Active Substance: ENOXAPARIN SODIUM
     Indication: EMBOLISM VENOUS
     Dosage: 4000 INTERNATIONAL UNIT
     Route: 058
     Dates: start: 20180118, end: 20180129
  7. RIFADINE                           /00146901/ [Suspect]
     Active Substance: RIFAMPIN
     Indication: INTERVERTEBRAL DISCITIS
     Dosage: 1200 MILLIGRAM, ONCE A DAY, 2-0-2
     Route: 048
     Dates: start: 20180129, end: 20180207
  8. LASILIX SPECIAL                    /00032601/ [Suspect]
     Active Substance: FUROSEMIDE
     Indication: INTERVERTEBRAL DISCITIS
     Dosage: 80 MILLIGRAM, TWO TIMES A DAY
     Route: 042
     Dates: start: 20180203, end: 20180205
  9. ERYTHROMYCIN. [Suspect]
     Active Substance: ERYTHROMYCIN
     Indication: INTERVERTEBRAL DISCITIS
     Dosage: 250 MILLIGRAM
     Route: 042
     Dates: start: 20180202, end: 20180202
  10. OFLOCET                            /00731801/ [Suspect]
     Active Substance: OFLOXACIN
     Indication: URINARY TRACT INFECTION
     Dosage: UNK, NON RENSEIGN?E
     Route: 048
     Dates: start: 20180109, end: 20180116
  11. MOVICOL [Suspect]
     Active Substance: POLYETHYLENE GLYCOL 3350\POTASSIUM CHLORIDE\SODIUM BICARBONATE\SODIUM CHLORIDE
     Indication: CONSTIPATION
     Dosage: 10 GRAM, ONCE A DAY (1-0-0)
     Route: 048
     Dates: start: 20180214
  12. DUOTRAV [Suspect]
     Active Substance: TIMOLOL MALEATE\TRAVOPROST
     Indication: GLAUCOMA
     Dosage: 2 DROP, ONCE A DAY, 1 GOUTTE MATIN ET SOIR (2 YEUX)
     Route: 047
     Dates: start: 20180122, end: 20180214
  13. TAZOCILLINE [Suspect]
     Active Substance: PIPERACILLIN SODIUM\TAZOBACTAM SODIUM
     Indication: INTERVERTEBRAL DISCITIS
     Dosage: 3 DOSAGE FORM, ONCE A DAY
     Route: 042
     Dates: start: 20180121, end: 20180128

REACTIONS (1)
  - Drug reaction with eosinophilia and systemic symptoms [Not Recovered/Not Resolved]

NARRATIVE: CASE EVENT DATE: 20180126
